FAERS Safety Report 5133064-0 (Version None)
Quarter: 2006Q4

REPORT INFORMATION
  Report Type: 
  Country: None (occurrence: None)
  Receive Date: 20061017
  Receipt Date: 20061004
  Transmission Date: 20070319
  Serious: Yes (Other)
  Sender: FDA-Public Use
  Company Number: 2005173222

PATIENT
  Age: 66 Year
  Sex: Male
  Weight: 102 kg

DRUGS (3)
  1. SUTENT [Suspect]
     Indication: METASTATIC RENAL CELL CARCINOMA
     Dosage: SEE IMAGE
     Route: 048
     Dates: start: 20050311
  2. SUTENT [Suspect]
     Indication: METASTATIC RENAL CELL CARCINOMA
     Dosage: SEE IMAGE
     Route: 048
     Dates: start: 20050422
  3. ALPRAZOLAM [Concomitant]

REACTIONS (5)
  - ACHOLIA [None]
  - DRUG INTERACTION [None]
  - JAUNDICE [None]
  - SKIN TOXICITY [None]
  - STEVENS-JOHNSON SYNDROME [None]
